FAERS Safety Report 16727289 (Version 5)
Quarter: 2022Q2

REPORT INFORMATION
  Report Type: Report from Study
  Country: US (occurrence: US)
  Receive Date: 20190822
  Receipt Date: 20220608
  Transmission Date: 20220721
  Serious: Yes (Hospitalization, Other)
  Sender: FDA-Public Use
  Company Number: US-SA-2019SA225296

PATIENT
  Age: 47 Year
  Sex: Female

DRUGS (2)
  1. LEMTRADA [Suspect]
     Active Substance: ALEMTUZUMAB
     Indication: Multiple sclerosis
     Dosage: 12 MG, QD
     Route: 041
     Dates: start: 20190730, end: 20190801
  2. LEMTRADA [Suspect]
     Active Substance: ALEMTUZUMAB
     Dosage: 12 MG, QD
     Route: 041
     Dates: start: 20180723, end: 20180727

REACTIONS (9)
  - Urinary incontinence [Recovered/Resolved]
  - Listeria sepsis [Recovered/Resolved]
  - Body temperature increased [Recovering/Resolving]
  - Pyrexia [Recovered/Resolved]
  - Hypokinesia [Recovered/Resolved]
  - Gait inability [Recovered/Resolved]
  - Fatigue [Recovered/Resolved]
  - Listeriosis [Unknown]
  - Fear of death [Recovered/Resolved]

NARRATIVE: CASE EVENT DATE: 20190805
